FAERS Safety Report 17274854 (Version 1)
Quarter: 2020Q1

REPORT INFORMATION
  Report Type: Spontaneous
  Country: US (occurrence: US)
  Receive Date: 20200116
  Receipt Date: 20200116
  Transmission Date: 20200409
  Serious: Yes (Death, Hospitalization, Other)
  Sender: FDA-Public Use
  Company Number: US-AUROBINDO-AUR-APL-2020-002538

PATIENT
  Age: 73 Year
  Sex: Male

DRUGS (6)
  1. CEFPODOXIME [Suspect]
     Active Substance: CEFPODOXIME
     Indication: ANTIBIOTIC PROPHYLAXIS
     Dosage: INITIATED ON DAY 1
     Route: 065
  2. MELPHALAN. [Suspect]
     Active Substance: MELPHALAN
     Indication: BONE MARROW CONDITIONING REGIMEN
     Dosage: UNK
     Route: 065
  3. FLUDARABINE [Suspect]
     Active Substance: FLUDARABINE PHOSPHATE
     Indication: BONE MARROW CONDITIONING REGIMEN
     Dosage: UNK
     Route: 065
  4. MYCOPHENOLATE MOFETIL. [Suspect]
     Active Substance: MYCOPHENOLATE MOFETIL
     Indication: PRODUCT USED FOR UNKNOWN INDICATION
     Dosage: (STARTED ON DAY 5)
     Route: 065
  5. CYCLOPHOSPHAMIDE. [Suspect]
     Active Substance: CYCLOPHOSPHAMIDE
     Indication: PROPHYLAXIS AGAINST GRAFT VERSUS HOST DISEASE
     Dosage: HIGH DOSE (ON DAYS 3 AND 4)
     Route: 065
  6. SIROLIMUS. [Suspect]
     Active Substance: SIROLIMUS
     Indication: PRODUCT USED FOR UNKNOWN INDICATION
     Dosage: UNK (STARTED ON DAY 5)
     Route: 065

REACTIONS (7)
  - Chills [Fatal]
  - Hypoxia [Fatal]
  - Dyspnoea [Fatal]
  - Pathogen resistance [Unknown]
  - Pyrexia [Fatal]
  - Sepsis [Fatal]
  - Mental status changes [Fatal]
